FAERS Safety Report 12597977 (Version 1)
Quarter: 2016Q3

REPORT INFORMATION
  Report Type: Spontaneous
  Country: JP (occurrence: JP)
  Receive Date: 20160726
  Receipt Date: 20160726
  Transmission Date: 20161109
  Serious: Yes (Other)
  Sender: FDA-Public Use
  Company Number: JP-GILEAD-2016-0220251

PATIENT
  Age: 41 Year
  Sex: Female

DRUGS (10)
  1. DESYREL [Concomitant]
     Active Substance: TRAZODONE HYDROCHLORIDE
     Dosage: 25 MG, UNK
  2. JANUVIA [Concomitant]
     Active Substance: SITAGLIPTIN PHOSPHATE
     Dosage: 50 MG, UNK
  3. REBETOL [Concomitant]
     Active Substance: RIBAVIRIN
     Indication: HEPATITIS
     Dosage: UNK
     Route: 048
     Dates: start: 20160621
  4. TETRAMIDE [Concomitant]
     Active Substance: MIANSERIN
     Dosage: 25 MG, UNK
  5. DOPAREEL [Concomitant]
     Active Substance: ZOPICLONE
     Dosage: 7.5 MG, UNK
  6. ETIZOLAM [Concomitant]
     Active Substance: ETIZOLAM
     Dosage: 1 MG, UNK
  7. SOVALDI [Suspect]
     Active Substance: SOFOSBUVIR
     Indication: HEPATITIS
     Dosage: UNK
     Route: 048
     Dates: start: 20160621
  8. HALCION [Concomitant]
     Active Substance: TRIAZOLAM
     Dosage: 0.15 MG, UNK
  9. HALOPERIDOL. [Concomitant]
     Active Substance: HALOPERIDOL
     Dosage: 3 MG, UNK
  10. LEVOTOMIN                          /00038602/ [Concomitant]
     Active Substance: LEVOMEPROMAZINE
     Dosage: 25 MG, UNK

REACTIONS (1)
  - Schizoaffective disorder [Not Recovered/Not Resolved]

NARRATIVE: CASE EVENT DATE: 20160622
